FAERS Safety Report 4910876-7 (Version None)
Quarter: 2006Q1

REPORT INFORMATION
  Report Type: 
  Country: None (occurrence: None)
  Receive Date: 20060208
  Receipt Date: 20060208
  Transmission Date: 20060701
  Serious: Yes (Hospitalization)
  Sender: FDA-Public Use
  Company Number: None

PATIENT
  Sex: Male
  Weight: 77.5651 kg

DRUGS (23)
  1. METOPROLOL 25 MG BID [Suspect]
     Indication: ANGINA PECTORIS
     Dosage: 25 MG BID
     Dates: start: 20050908
  2. METOPROLOL 25 MG BID [Suspect]
     Indication: HYPERTENSION
     Dosage: 25 MG BID
     Dates: start: 20050908
  3. FUROSEMIDE [Suspect]
     Indication: HYPERTENSION
     Dosage: 20 MG QD
     Dates: start: 20050928, end: 20051113
  4. LISINOPRIL [Suspect]
     Indication: HYPERTENSION
     Dosage: 10 MG QD
     Dates: start: 20050908
  5. DOXEPIN 25 MG BID PRN [Suspect]
     Indication: ANXIETY
     Dosage: 25 MG BID PRN
  6. DOXEPIN 25 MG BID PRN [Suspect]
     Indication: INSOMNIA
     Dosage: 25 MG BID PRN
  7. OMEPRAZOLE [Concomitant]
  8. BUPROPION HCL [Concomitant]
  9. METOPROLOL TARTRATE [Concomitant]
  10. SIMVASTATIN [Concomitant]
  11. DOXEPIN HCL [Concomitant]
  12. ACCU-CHECK COMFORT CV [Concomitant]
  13. BACLOFEN [Concomitant]
  14. CLOTRIMAZOLE [Concomitant]
  15. HUMULIN N [Concomitant]
  16. WARFARIN [Concomitant]
  17. FUROSEMIDE [Concomitant]
  18. HYDROCODONE BITARTRATE + ACETAMINOPHEN [Concomitant]
  19. AMMONIUM LACTATE [Concomitant]
  20. CYANOCOBALAMIN [Concomitant]
  21. FOLIC ACID [Concomitant]
  22. POTASSIUM CHLORIDE [Concomitant]
  23. GABAPENTIN [Concomitant]

REACTIONS (1)
  - ORTHOSTATIC HYPOTENSION [None]
